FAERS Safety Report 9618075 (Version 1)
Quarter: 2013Q4

REPORT INFORMATION
  Report Type: Spontaneous
  Country: US (occurrence: US)
  Receive Date: 20131012
  Receipt Date: 20131012
  Transmission Date: 20140711
  Serious: Yes (Other)
  Sender: FDA-Public Use
  Company Number: US-JNJFOC-20131002855

PATIENT
  Age: 46 Year
  Sex: Male

DRUGS (1)
  1. BENADRYL ALLERGY [Suspect]
     Indication: SEASONAL ALLERGY
     Dosage: 4-6 HOURS
     Route: 048

REACTIONS (1)
  - Intestinal haemorrhage [Recovered/Resolved]
